FAERS Safety Report 4725600-0 (Version None)
Quarter: 2005Q3

REPORT INFORMATION
  Report Type: 
  Country: None (occurrence: None)
  Receive Date: 20050727
  Receipt Date: 20050609
  Transmission Date: 20060218
  Serious: Yes (Hospitalization, Other)
  Sender: FDA-Public Use
  Company Number: GB-BRISTOL-MYERS SQUIBB COMPANY-13000351

PATIENT
  Age: 69 Year
  Sex: Female
  Weight: 80 kg

DRUGS (4)
  1. TAXOL [Suspect]
     Indication: ADENOCARCINOMA
     Dosage: 147 MG PER WEEK
     Route: 042
     Dates: start: 20050531, end: 20050531
  2. CARBOPLATIN [Concomitant]
     Indication: ADENOCARCINOMA
     Route: 042
     Dates: start: 20050419, end: 20050531
  3. PRIADEL [Concomitant]
     Indication: BIPOLAR DISORDER
     Dosage: DURATION OF THERAPY:  ^LONGTERM TO PRESENT^
     Route: 048
  4. IMIPRAMINE [Concomitant]
     Indication: BIPOLAR DISORDER
     Dosage: DURATION OF THERAPY:  ^LONG-TERM UP TO 08-JUN-2005^
     Route: 048
     Dates: end: 20050608

REACTIONS (3)
  - AUTONOMIC NEUROPATHY [None]
  - ORTHOSTATIC HYPOTENSION [None]
  - URINARY HESITATION [None]
